FAERS Safety Report 5053886-4 (Version None)
Quarter: 2006Q3

REPORT INFORMATION
  Report Type: 
  Country: None (occurrence: None)
  Receive Date: 20060718
  Receipt Date: 20060704
  Transmission Date: 20061208
  Serious: Yes (Hospitalization)
  Sender: FDA-Public Use
  Company Number: BR-JNJFOC-20060604757

PATIENT
  Age: 77 Year
  Sex: Female
  Weight: 55 kg

DRUGS (5)
  1. REMINYL [Suspect]
     Route: 048
  2. REMINYL [Suspect]
     Route: 048
  3. REMINYL [Suspect]
     Indication: MEMORY IMPAIRMENT
     Route: 048
  4. LIVIAL [Concomitant]
     Indication: HORMONE REPLACEMENT THERAPY
  5. INDAPAMIDE [Concomitant]
     Indication: DIURETIC THERAPY

REACTIONS (4)
  - ASTHENIA [None]
  - MALAISE [None]
  - TREMOR [None]
  - VISUAL DISTURBANCE [None]
